FAERS Safety Report 23305371 (Version 1)
Quarter: 2023Q4

REPORT INFORMATION
  Report Type: Other
  Country: CA (occurrence: None)
  Receive Date: 20231218
  Receipt Date: 20231218
  Transmission Date: 20240110
  Serious: Yes (Other)
  Sender: FDA-Public Use
  Company Number: CA-ROCHE-1509351

PATIENT
  Sex: Female
  Weight: 167 kg

DRUGS (8)
  1. ACTEMRA [Suspect]
     Active Substance: TOCILIZUMAB
     Indication: Rheumatoid arthritis
     Route: 042
     Dates: start: 20110105
  2. ACTEMRA [Suspect]
     Active Substance: TOCILIZUMAB
     Dosage: STUDY ROLLOVER. DETAILS NOT KNOWN
     Route: 042
  3. PLAQUENIL [Concomitant]
     Active Substance: HYDROXYCHLOROQUINE SULFATE
  4. MELOXICAM [Concomitant]
     Active Substance: MELOXICAM
  5. DIOVAN [Concomitant]
     Active Substance: VALSARTAN
  6. PREVACID [Concomitant]
     Active Substance: LANSOPRAZOLE
  7. COD LIVER OIL [Concomitant]
     Active Substance: COD LIVER OIL
  8. BISOPROLOL [Concomitant]
     Active Substance: BISOPROLOL\BISOPROLOL FUMARATE

REACTIONS (20)
  - Weight increased [Unknown]
  - Infusion related reaction [Unknown]
  - Weight decreased [Not Recovered/Not Resolved]
  - Heart rate increased [Unknown]
  - Blood pressure increased [Unknown]
  - Blood pressure systolic increased [Unknown]
  - General physical health deterioration [Not Recovered/Not Resolved]
  - Blood pressure diastolic increased [Unknown]
  - Blood pressure systolic abnormal [Unknown]
  - Weight fluctuation [Unknown]
  - Pain [Unknown]
  - Myalgia [Unknown]
  - Fall [Unknown]
  - Oxygen saturation decreased [Unknown]
  - Off label use [Unknown]
  - Muscle strain [Recovering/Resolving]
  - Blood pressure diastolic abnormal [Unknown]
  - Intercepted medication error [Unknown]
  - Walking aid user [Unknown]
  - Atrial fibrillation [Unknown]

NARRATIVE: CASE EVENT DATE: 20150101
